FAERS Safety Report 5713915-9 (Version None)
Quarter: 2008Q1

REPORT INFORMATION
  Report Type: 
  Country: None (occurrence: None)
  Receive Date: 20080211
  Receipt Date: 20080211
  Transmission Date: 20080703
  Serious: Yes (Death)
  Sender: FDA-Public Use
  Company Number: None

PATIENT
  Sex: Female
  Weight: 90.7194 kg

DRUGS (12)
  1. BUSPAR [Suspect]
     Indication: DYSPNOEA
     Dosage: 10 MG BID
     Dates: start: 20071223, end: 20080121
  2. CISPLATIN - VP16 CHEMO [Concomitant]
  3. ASPIRIN [Concomitant]
  4. COMBIVENT [Concomitant]
  5. DITORPAN XL [Concomitant]
  6. FLUCONAZOLE [Concomitant]
  7. GEMFIBROZIL [Concomitant]
  8. GLIMEPIRIDE [Concomitant]
  9. LIPITOR [Concomitant]
  10. MARINOL [Concomitant]
  11. NITROGLYCERIN [Concomitant]
  12. SPIRIVA WITH HANDIHALER [Concomitant]

REACTIONS (5)
  - ATELECTASIS [None]
  - LUNG NEOPLASM MALIGNANT [None]
  - MALIGNANT NEOPLASM PROGRESSION [None]
  - PNEUMONIA [None]
  - SYNCOPE [None]
